FAERS Safety Report 20825717 (Version 1)
Quarter: 2022Q2

REPORT INFORMATION
  Report Type: Spontaneous
  Country: NL (occurrence: NL)
  Receive Date: 20220513
  Receipt Date: 20220513
  Transmission Date: 20220721
  Serious: Yes (Other)
  Sender: FDA-Public Use
  Company Number: None

PATIENT
  Age: 65 Year
  Sex: Male
  Weight: 73 kg

DRUGS (5)
  1. SIMVASTATIN [Suspect]
     Active Substance: SIMVASTATIN
     Indication: Hypercholesterolaemia
     Dosage: 10 MILLIGRAM DAILY;   SIMVASTATINE TABLET FO 10MG / BRAND NAME NOT SPECIFIED
     Dates: start: 20220328, end: 20220405
  2. LORAZEPAM [Concomitant]
     Active Substance: LORAZEPAM
     Dosage: BRAND NAME NOT SPECIFIED , THERAPY START DATE AND END DATE : ASKU
  3. OMEPRAZOL FOCUS PHARMA [Concomitant]
     Dosage: 40 MG , OMEPRAZOL CAPSULE MSR 40MG / OMEPRAZOL FOCUS FARMA CAPSULE MSR 40MG , THERAPY START DATE AND
  4. CLOPIDOGREL [Concomitant]
     Active Substance: CLOPIDOGREL BISULFATE
     Dosage: STRENGTH : 75 MG , BRAND NAME NOT SPECIFIED , THERAPY START DATE AND END DATE : ASKU
  5. ENALAPRIL [Concomitant]
     Active Substance: ENALAPRIL
     Dosage: STRENGTH : 10 MG , BRAND NAME NOT SPECIFIED , THERAPY START DATE AND END DATE : ASKU

REACTIONS (2)
  - Paralysis [Not Recovered/Not Resolved]
  - Back pain [Not Recovered/Not Resolved]

NARRATIVE: CASE EVENT DATE: 20220401
